FAERS Safety Report 5032391-5 (Version None)
Quarter: 2006Q2

REPORT INFORMATION
  Report Type: 
  Country: None (occurrence: None)
  Receive Date: 20060621
  Receipt Date: 20060621
  Transmission Date: 20061013
  Serious: Yes (Other)
  Sender: FDA-Public Use
  Company Number: None

PATIENT
  Sex: Female

DRUGS (2)
  1. FENTANYL [Suspect]
     Indication: NEURALGIA
     Dosage: 25 MCG 1 EVERY 72 HRS PATCH
     Route: 062
     Dates: start: 20060614
  2. FENTANYL [Suspect]
     Indication: NEURALGIA
     Dosage: 25 MCG 1 EVERY 72 HRS PATCH
     Route: 062
     Dates: start: 20060615

REACTIONS (2)
  - DRUG INEFFECTIVE [None]
  - THERAPEUTIC RESPONSE UNEXPECTED WITH DRUG SUBSTITUTION [None]
